FAERS Safety Report 15470542 (Version 2)
Quarter: 2019Q1

REPORT INFORMATION
  Report Type: Report from Study
  Country: BE (occurrence: BE)
  Receive Date: 20181005
  Receipt Date: 20190220
  Transmission Date: 20190417
  Serious: Yes (Death, Life-Threatening, Hospitalization, Other)
  Sender: FDA-Public Use
  Company Number: BE-PFIZER INC-2018213771

PATIENT
  Age: 61 Year
  Sex: Female
  Weight: 43 kg

DRUGS (22)
  1. ZALDIAR [Concomitant]
     Active Substance: ACETAMINOPHEN\TRAMADOL HYDROCHLORIDE
     Dosage: 1 DF, 2X/DAY
     Route: 065
     Dates: start: 20160104, end: 20170619
  2. FLUOROURACIL. [Suspect]
     Active Substance: FLUOROURACIL
     Dosage: UNK, CYCLIC
     Route: 042
  3. AFLIBERCEPT [Suspect]
     Active Substance: AFLIBERCEPT
     Indication: COLORECTAL CANCER METASTATIC
     Dosage: UNK, CYCLIC
     Route: 042
     Dates: start: 20170504, end: 20170504
  4. AUGMENTIN [Concomitant]
     Active Substance: AMOXICILLIN\CLAVULANATE POTASSIUM
     Dosage: UNK
     Route: 065
     Dates: start: 20170512, end: 20170526
  5. MORPHINE [Concomitant]
     Active Substance: MORPHINE
     Dosage: 10 MG, CONTINUOUS / 24 HOURS
     Route: 042
     Dates: start: 20170614, end: 20170619
  6. STILNOCT [Concomitant]
     Active Substance: ZOLPIDEM TARTRATE
     Dosage: UNK
     Route: 065
     Dates: start: 20170210, end: 20170619
  7. FLUOROURACIL. [Suspect]
     Active Substance: FLUOROURACIL
     Indication: COLORECTAL CANCER METASTATIC
     Dosage: UNK, CYCLIC
     Route: 040
  8. MEDROL [Concomitant]
     Active Substance: METHYLPREDNISOLONE
     Route: 065
     Dates: start: 20170403, end: 20170606
  9. PANTOMED [DEXPANTHENOL] [Concomitant]
     Dosage: 40 MG, 1X/DAY
     Dates: start: 20170606, end: 20170619
  10. OXYNORM [Concomitant]
     Active Substance: OXYCODONE HYDROCHLORIDE
     Dosage: 2 DF, 1X/DAY
     Route: 065
     Dates: start: 20170210
  11. SOLUVIT NOVUM [VITAMINS NOS] [Concomitant]
     Dosage: 1 DF, 1X/DAY (1 VIAL)
     Route: 042
     Dates: start: 20170606, end: 20170619
  12. OLIMELT [Concomitant]
     Active Substance: OLANZAPINE
     Dosage: 1 DF, 1X/DAY (OLIMEL NTE - 960)
     Route: 065
     Dates: start: 20170606
  13. IRINOTECAN HCL [Suspect]
     Active Substance: IRINOTECAN HYDROCHLORIDE
     Indication: COLORECTAL CANCER METASTATIC
     Dosage: UNK, CYCLIC
     Route: 042
  14. AFLIBERCEPT [Suspect]
     Active Substance: AFLIBERCEPT
     Dosage: UNK, CYCLIC
     Route: 042
  15. IMODIUM [Concomitant]
     Active Substance: LOPERAMIDE HYDROCHLORIDE
     Dosage: UNK
     Route: 065
     Dates: start: 20170526, end: 20170606
  16. CALCIUM FOLINATE [Suspect]
     Active Substance: LEUCOVORIN CALCIUM
     Indication: COLORECTAL CANCER METASTATIC
     Dosage: UNK, CYCLIC
     Route: 042
  17. PARACETAMOL [Concomitant]
     Active Substance: ACETAMINOPHEN
     Dosage: 3 DF, 1X/DAY
     Route: 048
     Dates: start: 20170607, end: 20170608
  18. BAREXAL [Concomitant]
     Dosage: UNK
     Route: 065
     Dates: start: 20170506, end: 20170526
  19. FLAMINAL [SODIUM ALGINATE] [Concomitant]
     Dosage: 3 DF, 1X/DAY (FLAMINAL HYDRO GEL)
     Route: 003
     Dates: start: 20170609
  20. PANTOMED [DEXPANTHENOL] [Concomitant]
     Dosage: PANTOMED 40
     Route: 065
     Dates: start: 20170210, end: 20170606
  21. OXYNORM [Concomitant]
     Active Substance: OXYCODONE HYDROCHLORIDE
     Dosage: 2 DF, 1X/DAY
     Dates: start: 20170606
  22. MORPHINE [Concomitant]
     Active Substance: MORPHINE
     Dosage: 10 MG, CONTINUOUS / 24 HOURS
     Route: 042
     Dates: start: 20170609, end: 20170614

REACTIONS (14)
  - Liver abscess [Recovered/Resolved]
  - Liver abscess [Recovered/Resolved]
  - Urinary tract infection [Recovered/Resolved]
  - Abdominal pain [Recovered/Resolved]
  - Pyrexia [Recovered/Resolved]
  - Urinary tract infection [Recovered/Resolved]
  - General physical health deterioration [Fatal]
  - Vulval disorder [Recovered/Resolved]
  - Diarrhoea [Recovered/Resolved]
  - Abdominal pain [Recovered/Resolved]
  - Pelvic pain [Recovered/Resolved]
  - Pain [Recovered/Resolved]
  - Sepsis [Recovered/Resolved]
  - Cholangitis [Recovered/Resolved]

NARRATIVE: CASE EVENT DATE: 20170518
